FAERS Safety Report 4318610-9 (Version None)
Quarter: 2004Q1

REPORT INFORMATION
  Report Type: 
  Country: None (occurrence: None)
  Receive Date: 20040316
  Receipt Date: 20040316
  Transmission Date: 20041129
  Serious: Yes (Disabling, Other)
  Sender: FDA-Public Use
  Company Number: None

PATIENT
  Age: 51 Year
  Sex: Female
  Weight: 63.5036 kg

DRUGS (1)
  1. SEPTOCAINE [Suspect]
     Dosage: 1.5 ML MANDIBULAR BLOCK
     Dates: start: 20030731

REACTIONS (6)
  - DYSGEUSIA [None]
  - EATING DISORDER [None]
  - FEELING ABNORMAL [None]
  - MEMORY IMPAIRMENT [None]
  - PAIN [None]
  - SWOLLEN TONGUE [None]
